FAERS Safety Report 8005889-5 (Version None)
Quarter: 2011Q4

REPORT INFORMATION
  Report Type: 
  Country: None (occurrence: None)
  Receive Date: 20111223
  Receipt Date: 20111215
  Transmission Date: 20120403
  Serious: Yes (Hospitalization)
  Sender: FDA-Public Use
  Company Number: DE-ROCHE-1016718

PATIENT
  Sex: Male
  Weight: 85 kg

DRUGS (7)
  1. BASILIXIMAB [Suspect]
     Indication: RENAL TRANSPLANT
     Dosage: LAST DOSE PRIOR TO SAE: 12/FEB/2011
     Route: 042
     Dates: start: 20110208
  2. TACROLIMUS [Suspect]
     Dosage: LAST DOSE PRIOR TO SAE: 14/FEB/2011
     Route: 048
     Dates: start: 20110208
  3. PREDNISOLONE [Suspect]
     Dosage: LAST DOSE PRIOR TO SAE
     Route: 048
     Dates: start: 20110208
  4. MYCOPHENOLATE MOFETIL (CELLCEPT) [Suspect]
     Indication: RENAL TRANSPLANT
     Dosage: LAST DOSE PRIOR TO SAE: 23/JUN/2011
     Route: 048
  5. MYCOPHENOLATE MOFETIL (CELLCEPT) [Suspect]
     Dosage: LAST DOSE PRIOR TO SE; 14/FEB/2011
     Route: 048
     Dates: start: 20110208
  6. TACROLIMUS [Suspect]
     Indication: RENAL TRANSPLANT
     Dosage: LAST DOSE PRIOR TO SAE: 23/JUN/2011
     Route: 048
  7. PREDNISOLONE [Suspect]
     Indication: RENAL TRANSPLANT
     Dosage: LAST DOSE PRIOR TO SAE: 23/JUN/2011
     Route: 048

REACTIONS (3)
  - PYELONEPHRITIS [None]
  - WOUND DEHISCENCE [None]
  - TRANSPLANT REJECTION [None]
